FAERS Safety Report 5276955-2 (Version None)
Quarter: 2007Q1

REPORT INFORMATION
  Report Type: 
  Country: None (occurrence: None)
  Receive Date: 20070327
  Receipt Date: 20070319
  Transmission Date: 20070707
  Serious: Yes (Death, Hospitalization)
  Sender: FDA-Public Use
  Company Number: US-AMGEN-US215483

PATIENT
  Sex: Male

DRUGS (4)
  1. ARANESP [Suspect]
     Indication: ANAEMIA OF MALIGNANT DISEASE
     Dates: start: 20070101
  2. HERCEPTIN [Concomitant]
  3. BLOOD CELLS, PACKED HUMAN [Concomitant]
  4. SODIUM PHENYLBUTYRATE [Concomitant]

REACTIONS (4)
  - DEATH [None]
  - HAEMORRHAGE [None]
  - PULMONARY EMBOLISM [None]
  - THERAPEUTIC RESPONSE DECREASED [None]
